FAERS Safety Report 22118866 (Version 2)
Quarter: 2023Q2

REPORT INFORMATION
  Report Type: Spontaneous
  Country: US (occurrence: None)
  Receive Date: 20230321
  Receipt Date: 20230417
  Transmission Date: 20230722
  Serious: No
  Sender: FDA-Public Use
  Company Number: 2023A046991

PATIENT
  Sex: Female
  Weight: 108 kg

DRUGS (2)
  1. TEZSPIRE [Suspect]
     Active Substance: TEZEPELUMAB-EKKO
     Indication: Asthma
     Route: 058
  2. SIMVASTATIN [Suspect]
     Active Substance: SIMVASTATIN
     Dosage: 40.0MG UNKNOWN

REACTIONS (5)
  - Oropharyngeal pain [Unknown]
  - Myalgia [Unknown]
  - Arthralgia [Unknown]
  - Gait disturbance [Unknown]
  - Drug ineffective [Unknown]
